FAERS Safety Report 25928393 (Version 2)
Quarter: 2025Q4

REPORT INFORMATION
  Report Type: Spontaneous
  Country: EU (occurrence: EU)
  Receive Date: 20251016
  Receipt Date: 20251105
  Transmission Date: 20260117
  Serious: Yes (Hospitalization)
  Sender: TEVA
  Company Number: EU-TEVA-VS-3380393

PATIENT
  Age: 54 Year
  Sex: Female

DRUGS (1)
  1. AZITHROMYCIN [Suspect]
     Active Substance: AZITHROMYCIN
     Indication: Evidence based treatment
     Route: 065

REACTIONS (3)
  - Eosinophilia [Recovered/Resolved]
  - Eosinophilic hepatitis [Recovered/Resolved]
  - Hepatosplenomegaly [Recovered/Resolved]
